FAERS Safety Report 25048145 (Version 2)
Quarter: 2025Q1

REPORT INFORMATION
  Report Type: Report from Study
  Country: US (occurrence: US)
  Receive Date: 20250306
  Receipt Date: 20250327
  Transmission Date: 20250409
  Serious: Yes (Hospitalization, Other)
  Sender: ABBVIE
  Company Number: US-ABBVIE-6158597

PATIENT
  Age: 51 Year
  Sex: Female

DRUGS (1)
  1. SKYRIZI [Suspect]
     Active Substance: RISANKIZUMAB-RZAA
     Indication: Psoriasis
     Route: 058
     Dates: start: 202211

REACTIONS (12)
  - Spinal compression fracture [Not Recovered/Not Resolved]
  - Nerve injury [Unknown]
  - Complex regional pain syndrome [Not Recovered/Not Resolved]
  - Oesophageal obstruction [Unknown]
  - Fibromyalgia [Unknown]
  - Back pain [Not Recovered/Not Resolved]
  - Sleep apnoea syndrome [Unknown]
  - Embolic stroke [Unknown]
  - Swelling [Unknown]
  - Arterial occlusive disease [Unknown]
  - Inflammation [Unknown]
  - Arthropathy [Unknown]

NARRATIVE: CASE EVENT DATE: 20240601
